FAERS Safety Report 11455565 (Version 1)
Quarter: 2015Q3

REPORT INFORMATION
  Report Type: Spontaneous
  Country: US (occurrence: US)
  Receive Date: 20150903
  Receipt Date: 20150903
  Transmission Date: 20151125
  Serious: No
  Sender: FDA-Public Use
  Company Number: US-BEH-2014043720

PATIENT
  Age: 34 Year
  Sex: Male
  Weight: 83 kg

DRUGS (18)
  1. COREG [Concomitant]
     Active Substance: CARVEDILOL
  2. ALBUTEROL. [Concomitant]
     Active Substance: ALBUTEROL
  3. WARFARIN [Concomitant]
     Active Substance: WARFARIN
  4. DAILY MULTIPLE VITAMIN [Concomitant]
     Dosage: DAILY
  5. PRILOSEC [Concomitant]
     Active Substance: OMEPRAZOLE MAGNESIUM
  6. SPIRONOLACTONE. [Concomitant]
     Active Substance: SPIRONOLACTONE
  7. SPIRIVA [Concomitant]
     Active Substance: TIOTROPIUM BROMIDE MONOHYDRATE
  8. VITAMIN D [Concomitant]
     Active Substance: CHOLECALCIFEROL
  9. DIPHENHYDRAMINE. [Concomitant]
     Active Substance: DIPHENHYDRAMINE
  10. ZEMAIRA [Suspect]
     Active Substance: .ALPHA.1-PROTEINASE INHIBITOR HUMAN
     Indication: ALPHA-1 ANTI-TRYPSIN DEFICIENCY
     Dosage: 989 MG/VIAL
     Route: 042
     Dates: start: 20140625, end: 20140625
  11. COZAAR [Concomitant]
     Active Substance: LOSARTAN POTASSIUM
  12. SODIUM CHLORIDE. [Concomitant]
     Active Substance: SODIUM CHLORIDE
  13. EPIPEN [Concomitant]
     Active Substance: EPINEPHRINE
  14. NORMAL SALINE [Concomitant]
     Active Substance: SODIUM CHLORIDE
  15. FLOVENT [Concomitant]
     Active Substance: FLUTICASONE PROPIONATE
  16. KLOR-CON [Concomitant]
     Active Substance: POTASSIUM CHLORIDE
  17. TORSEMIDE. [Concomitant]
     Active Substance: TORSEMIDE
  18. LIPITOR [Concomitant]
     Active Substance: ATORVASTATIN CALCIUM

REACTIONS (1)
  - Chest pain [Unknown]

NARRATIVE: CASE EVENT DATE: 20140629
